FAERS Safety Report 8600492-8 (Version None)
Quarter: 2012Q3

REPORT INFORMATION
  Report Type: 
  Country: None (occurrence: None)
  Receive Date: 20120802
  Receipt Date: 20120718
  Transmission Date: 20120928
  Serious: Yes (Hospitalization)
  Sender: FDA-Public Use
  Company Number: DSM-2012-00692

PATIENT
  Age: 49 Year
  Sex: Female

DRUGS (2)
  1. OLMESARTAN MEDOXOMIL [Suspect]
     Indication: HYPERTENSION
     Dosage: 10 MG (10 MG, 1 IN 1 D), ORAL
     Route: 048
     Dates: start: 20060101, end: 20120529
  2. CRESTOR [Concomitant]

REACTIONS (3)
  - DYSPHONIA [None]
  - ANGIOEDEMA [None]
  - DYSPNOEA [None]
